FAERS Safety Report 7371849-0 (Version None)
Quarter: 2011Q1

REPORT INFORMATION
  Report Type: 
  Country: None (occurrence: None)
  Receive Date: 20110324
  Receipt Date: 20110323
  Transmission Date: 20110831
  Serious: Yes (Hospitalization)
  Sender: FDA-Public Use
  Company Number: CH-ROXANE LABORATORIES, INC.-2011-DE-01257GD

PATIENT
  Age: 88 Year
  Sex: Female

DRUGS (9)
  1. PROPRANOLOL [Concomitant]
     Dosage: 15 MG
  2. CLARITHROMYCIN TABLETS USP, 500MG [Suspect]
     Indication: INFECTION
  3. CALCIUM [Concomitant]
     Indication: MINERAL SUPPLEMENTATION
     Route: 048
  4. OPIOIDS [Concomitant]
     Indication: PAIN IN EXTREMITY
  5. TORASEMIDE [Concomitant]
     Dosage: 10 MG
  6. SIMVASTATIN [Suspect]
     Dosage: 40 MG
  7. ACENOCOUMAROL [Concomitant]
  8. THYROID HORMONES [Concomitant]
     Indication: HYPOPARATHYROIDISM
  9. CLARITHROMYCIN TABLETS USP, 500MG [Suspect]
     Indication: BRONCHITIS

REACTIONS (6)
  - DRUG INTERACTION [None]
  - MYALGIA [None]
  - LIVER INJURY [None]
  - RENAL IMPAIRMENT [None]
  - RHABDOMYOLYSIS [None]
  - ASTHENIA [None]
